FAERS Safety Report 9531690 (Version 1)
Quarter: 2013Q3

REPORT INFORMATION
  Report Type: Spontaneous
  Country: IQ (occurrence: IQ)
  Receive Date: 20130918
  Receipt Date: 20130918
  Transmission Date: 20140515
  Serious: Yes (Death)
  Sender: FDA-Public Use
  Company Number: IQ-SANOFI-AVENTIS-2013SA090942

PATIENT
  Age: 27 Year
  Sex: Female

DRUGS (4)
  1. CEFOTAXIME SODIUM [Suspect]
     Indication: PROPHYLAXIS
     Route: 042
  2. FLAGYL [Suspect]
     Indication: PROPHYLAXIS
     Dosage: VIAL
     Route: 042
  3. GLUCOSE [Suspect]
     Indication: PRODUCT USED FOR UNKNOWN INDICATION
     Route: 065
  4. TRAMAL [Suspect]
     Indication: ANALGESIC THERAPY
     Dosage: DOSE- 1 (UNITS UNSPECIFIED)?FORM- AMPOULE
     Route: 042

REACTIONS (7)
  - Anaphylactic shock [Fatal]
  - Generalised oedema [Fatal]
  - Pulse absent [Fatal]
  - Blood pressure immeasurable [Fatal]
  - Cyanosis [Fatal]
  - Peripheral coldness [Fatal]
  - Tachypnoea [Fatal]
